FAERS Safety Report 8096454-2 (Version None)
Quarter: 2012Q1

REPORT INFORMATION
  Report Type: 
  Country: None (occurrence: None)
  Receive Date: 20120129
  Receipt Date: 20111213
  Transmission Date: 20120608
  Serious: No
  Sender: FDA-Public Use
  Company Number: US-ABBOTT-11P-163-0883108-00

PATIENT
  Age: 54 Year
  Sex: Female

DRUGS (11)
  1. HUMIRA [Suspect]
     Indication: COLITIS ULCERATIVE
  2. ONDANSETRON HCL [Concomitant]
     Indication: PRODUCT USED FOR UNKNOWN INDICATION
  3. PLAQUENIL [Concomitant]
     Indication: AUTOIMMUNE DISORDER
  4. HUMIRA [Suspect]
     Indication: CROHN'S DISEASE
     Dates: start: 20111124, end: 20111208
  5. PREMARIN [Concomitant]
     Indication: PRODUCT USED FOR UNKNOWN INDICATION
  6. ACIPHEX [Concomitant]
     Indication: COLITIS
  7. HUMIRA [Suspect]
     Indication: AUTOIMMUNE DISORDER
     Dates: start: 20110801, end: 20111001
  8. MULTI-VITAMINS [Concomitant]
     Indication: PRODUCT USED FOR UNKNOWN INDICATION
  9. ACIPHEX [Concomitant]
     Indication: CROHN'S DISEASE
  10. CALCIUM [Concomitant]
     Indication: SUPPLEMENTATION THERAPY
  11. LEVSIN [Concomitant]
     Indication: GASTROINTESTINAL DISORDER
     Dosage: 2 IN ONE DAY, AND UP TO 4 TIMES A DAY

REACTIONS (12)
  - VOMITING [None]
  - ABDOMINAL PAIN [None]
  - DRUG EFFECT DECREASED [None]
  - INJECTION SITE PAIN [None]
  - NAUSEA [None]
  - INJECTION SITE ERYTHEMA [None]
  - FEELING ABNORMAL [None]
  - DIZZINESS [None]
  - COLD SWEAT [None]
  - ASTHENIA [None]
  - PALLOR [None]
  - HEADACHE [None]
